FAERS Safety Report 6093207-1 (Version None)
Quarter: 2009Q1

REPORT INFORMATION
  Report Type: 
  Country: None (occurrence: None)
  Receive Date: 20090226
  Receipt Date: 20090224
  Transmission Date: 20090719
  Serious: Yes (Other)
  Sender: FDA-Public Use
  Company Number: SE-BRISTOL-MYERS SQUIBB COMPANY-14517627

PATIENT
  Age: 48 Year
  Sex: Male

DRUGS (8)
  1. ORENCIA [Suspect]
     Indication: RHEUMATOID ARTHRITIS
     Dosage: 1ST INFUSION ON 22SEP08
     Route: 042
     Dates: start: 20090211
  2. PLAVIX [Concomitant]
  3. METHOTREXATE [Concomitant]
  4. VOLTAREN [Concomitant]
  5. LYRICA [Concomitant]
  6. SIMVASTATIN [Concomitant]
  7. OXYCONTIN [Concomitant]
  8. SELO-ZOK [Concomitant]

REACTIONS (1)
  - THROMBOCYTOPENIA [None]
